FAERS Safety Report 15362908 (Version 1)
Quarter: 2018Q3

REPORT INFORMATION
  Report Type: Spontaneous
  Country: US (occurrence: US)
  Receive Date: 20180907
  Receipt Date: 20180907
  Transmission Date: 20181010
  Serious: No
  Sender: FDA-Public Use
  Company Number: US-ASTRAZENECA-2018SF03366

PATIENT
  Sex: Male

DRUGS (1)
  1. BYDUREON BCISE [Suspect]
     Active Substance: EXENATIDE
     Dosage: 2 UNITS
     Route: 065
     Dates: start: 20180710, end: 20180808

REACTIONS (2)
  - Mass [Unknown]
  - Pruritus [Unknown]

NARRATIVE: CASE EVENT DATE: 20180710
